FAERS Safety Report 20620874 (Version 3)
Quarter: 2022Q2

REPORT INFORMATION
  Report Type: Spontaneous
  Country: US (occurrence: US)
  Receive Date: 20220322
  Receipt Date: 20220421
  Transmission Date: 20220721
  Serious: No
  Sender: FDA-Public Use
  Company Number: US-BAYER-2022A037654

PATIENT
  Age: 59 Year
  Sex: Female

DRUGS (1)
  1. CLIMARA PRO [Suspect]
     Active Substance: ESTRADIOL\LEVONORGESTREL
     Dosage: UNK
     Route: 062
     Dates: start: 202108

REACTIONS (5)
  - Device adhesion issue [None]
  - Application site hypersensitivity [None]
  - Application site pruritus [None]
  - Application site swelling [None]
  - Application site irritation [None]

NARRATIVE: CASE EVENT DATE: 20220201
